FAERS Safety Report 9822093 (Version 2)
Quarter: 2014Q2

REPORT INFORMATION
  Report Type: Spontaneous
  Country: IT (occurrence: IT)
  Receive Date: 20140116
  Receipt Date: 20140428
  Transmission Date: 20141212
  Serious: Yes (Other)
  Sender: FDA-Public Use
  Company Number: IT-PFIZER INC-2014013547

PATIENT
  Age: 89 Year
  Sex: Male

DRUGS (3)
  1. TOTALIP [Suspect]
     Dosage: 80 MG, 1X/DAY
     Route: 048
     Dates: start: 20130622, end: 20130802
  2. RAMIPRIL [Concomitant]
     Indication: HYPERTENSION
     Dosage: 25 MG, UNK
     Route: 048
     Dates: start: 20130622, end: 20131030
  3. DUOPLAVIN [Concomitant]
     Indication: CORONARY ARTERY DISEASE
     Dosage: UNK
     Dates: start: 20130622, end: 20131030

REACTIONS (5)
  - Myopathy [Recovered/Resolved]
  - Asthenia [Recovered/Resolved]
  - Blood creatine phosphokinase increased [Recovered/Resolved]
  - Myalgia [Recovered/Resolved]
  - Medication error [Unknown]
